FAERS Safety Report 10310036 (Version 2)
Quarter: 2014Q3

REPORT INFORMATION
  Report Type: Report from Study
  Country: US (occurrence: US)
  Receive Date: 20140717
  Receipt Date: 20140828
  Transmission Date: 20150326
  Serious: Yes (Hospitalization, Other)
  Sender: FDA-Public Use
  Company Number: PHEH2014US014047

PATIENT
  Age: 76 Year
  Sex: Female
  Weight: 118.5 kg

DRUGS (35)
  1. ATIVAN [Concomitant]
     Active Substance: LORAZEPAM
     Dosage: 0.5 MG, BID
     Route: 048
  2. METANX [Concomitant]
     Active Substance: LEVOMEFOLATE CALCIUM\METHYLCOBALAMIN\PYRIDOXAL PHOSPHATE ANHYDROUS
     Dosage: 1 DF, QD
     Route: 048
  3. AROMASIN [Concomitant]
     Active Substance: EXEMESTANE
     Indication: BREAST CANCER
     Dosage: 1 DF, QD
     Route: 048
     Dates: start: 20140120
  4. LEVOTHYROXINE SODIUM. [Concomitant]
     Active Substance: LEVOTHYROXINE SODIUM
     Dosage: 1 DF, QD
     Route: 048
  5. VITAMIN B COMPLEX [Concomitant]
     Active Substance: CYANOCOBALAMIN\DEXPANTHENOL\NIACINAMIDE\PYRIDOXINE HYDROCHLORIDE\RIBOFLAVIN 5^-PHOSPHATE SODIUM\THIAMINE HYDROCHLORIDE\VITAMIN B COMPLEX
     Route: 048
     Dates: end: 20140630
  6. FEMARA [Concomitant]
     Active Substance: LETROZOLE
     Dosage: 1 DF, QD
     Route: 048
     Dates: end: 20121108
  7. HYDROCHLOROTHIAZIDE. [Concomitant]
     Active Substance: HYDROCHLOROTHIAZIDE
     Dosage: 1 DF, QD
     Route: 048
     Dates: end: 20121108
  8. WELCHOL [Concomitant]
     Active Substance: COLESEVELAM HYDROCHLORIDE
     Dosage: 1 DF, QD
     Route: 048
     Dates: start: 20130718, end: 20131112
  9. DITIZEM [Concomitant]
     Dosage: 1 DF, QD
     Route: 048
  10. LISINOPRIL. [Concomitant]
     Active Substance: LISINOPRIL
     Dosage: 40 MG, UNK
     Route: 048
  11. OMEPRAZOLE. [Concomitant]
     Active Substance: OMEPRAZOLE
     Dosage: 1 DF, QD
     Route: 048
  12. CIMETIDINE [Concomitant]
     Active Substance: CIMETIDINE
     Dosage: 1 DF, QD
     Route: 048
     Dates: end: 20140512
  13. MELOXICAM. [Concomitant]
     Active Substance: MELOXICAM
     Dosage: 1 DF, QD
     Route: 048
     Dates: end: 20121108
  14. AFINITOR [Suspect]
     Active Substance: EVEROLIMUS
     Indication: BREAST CANCER METASTATIC
     Dosage: 10 MG, QD
     Route: 048
     Dates: start: 20140130
  15. CULTURELLE [Concomitant]
     Active Substance: LACTOBACILLUS RHAMNOSUS
     Dosage: 1 DF, QD
     Route: 048
  16. HYDROCODONE ACETAMINOPHEN [Concomitant]
     Active Substance: ACETAMINOPHEN\HYDROCODONE BITARTRATE
     Dosage: 1 DF, PRN
     Route: 048
  17. AMLODIPINE BESYLATE. [Concomitant]
     Active Substance: AMLODIPINE BESYLATE
     Dosage: 5 MG, QD
     Route: 048
     Dates: end: 20130604
  18. IBUPROFEN. [Concomitant]
     Active Substance: IBUPROFEN
     Route: 048
     Dates: end: 20121108
  19. POTASSIUM [Concomitant]
     Active Substance: POTASSIUM
     Route: 048
     Dates: end: 20121108
  20. AFINITOR [Suspect]
     Active Substance: EVEROLIMUS
     Dosage: 10 MG, QD
     Route: 048
     Dates: start: 20140507, end: 20140630
  21. DOCUSATE SODIUM. [Concomitant]
     Active Substance: DOCUSATE SODIUM
     Dosage: 1 DF, QD
     Route: 048
  22. NORCO [Concomitant]
     Active Substance: ACETAMINOPHEN\HYDROCODONE BITARTRATE
     Dosage: 1 DF, QD
     Route: 048
     Dates: end: 20140618
  23. TRILIPIX [Concomitant]
     Active Substance: FENOFIBRIC ACID
     Dosage: 1 DF, QD
     Route: 048
     Dates: end: 20130618
  24. DILT CD [Concomitant]
     Dosage: 1 DF, QD
     Route: 048
     Dates: end: 20140730
  25. DURAGESIC//FENTANYL [Concomitant]
     Dosage: 1 DF, Q72H
     Route: 062
     Dates: end: 20140708
  26. TUMS [Concomitant]
     Active Substance: CALCIUM CARBONATE
     Dosage: 1 DF, Q6H
     Route: 048
  27. AMLODIPINE BESYLATE. [Concomitant]
     Active Substance: AMLODIPINE BESYLATE
     Dosage: 2.5 MG, QD
     Route: 048
     Dates: start: 20140109, end: 20140630
  28. AROMASIN [Concomitant]
     Active Substance: EXEMESTANE
     Dosage: 1 DF, QD
     Route: 048
     Dates: end: 20140730
  29. CALCIUM [Concomitant]
     Active Substance: CALCIUM
     Route: 048
     Dates: end: 20110616
  30. EXFORGE [Concomitant]
     Active Substance: AMLODIPINE BESYLATE\VALSARTAN
     Dosage: 1 DF, QD
     Route: 048
     Dates: end: 20121108
  31. ZOMETA [Concomitant]
     Active Substance: ZOLEDRONIC ACID
     Dosage: 4 MG, QD
     Route: 042
     Dates: start: 201306, end: 20140630
  32. CYANOCOBALAMIN. [Concomitant]
     Active Substance: CYANOCOBALAMIN
     Dosage: 1 DF, QMO
     Route: 065
     Dates: start: 20130718, end: 20140109
  33. LORTAB [Concomitant]
     Active Substance: ACETAMINOPHEN\HYDROCODONE BITARTRATE
     Dosage: 1 DF, PRN
     Route: 048
     Dates: start: 20140618, end: 20140730
  34. TRAMADOL HCL [Concomitant]
     Active Substance: TRAMADOL HYDROCHLORIDE
     Dosage: 1 DF, PRN
     Route: 048
     Dates: end: 20121108
  35. MAGNESIUM OXIDE. [Concomitant]
     Active Substance: MAGNESIUM OXIDE
     Dosage: 1 DF, QD
     Route: 048

REACTIONS (7)
  - Back pain [Unknown]
  - Malignant neoplasm progression [Unknown]
  - Nausea [Unknown]
  - Malaise [Unknown]
  - Infection [Unknown]
  - Pyrexia [Unknown]
  - Spinal fracture [Unknown]

NARRATIVE: CASE EVENT DATE: 201406
